FAERS Safety Report 9224816 (Version 1)
Quarter: 2013Q2

REPORT INFORMATION
  Report Type: Spontaneous
  Country: US (occurrence: None)
  Receive Date: 20130409
  Receipt Date: 20130409
  Transmission Date: 20140414
  Serious: No
  Sender: FDA-Public Use
  Company Number: None

PATIENT
  Age: 48 Year
  Sex: Male

DRUGS (1)
  1. ENBREL 50 MG AMGEN [Suspect]
     Indication: RHEUMATOID ARTHRITIS
     Dates: start: 20121112

REACTIONS (4)
  - Headache [None]
  - Dizziness [None]
  - Vision blurred [None]
  - Multiple allergies [None]
